FAERS Safety Report 25487873 (Version 1)
Quarter: 2025Q2

REPORT INFORMATION
  Report Type: Spontaneous
  Country: PH (occurrence: PH)
  Receive Date: 20250627
  Receipt Date: 20250627
  Transmission Date: 20250717
  Serious: Yes (Other)
  Sender: NOVARTIS
  Company Number: PH-002147023-NVSC2025PH098875

PATIENT
  Age: 62 Year
  Sex: Male

DRUGS (4)
  1. ENTRESTO [Suspect]
     Active Substance: SACUBITRIL\VALSARTAN
     Indication: Cardiac failure
     Dosage: 100 MG, BID (1/2 TAB TWICE DAILY)
     Route: 048
  2. PANTOPRAZOLE [Suspect]
     Active Substance: PANTOPRAZOLE
     Indication: Product used for unknown indication
     Dosage: 40 MG, QD (30 MINUTES BEFORE BREAKFAST FOR 1 WEEK (STOMACH ACID MEDICATION))
     Route: 065
  3. DAPAGLIFLOZIN [Suspect]
     Active Substance: DAPAGLIFLOZIN
     Indication: Product used for unknown indication
     Dosage: UNK, QD (ONCE DAILY AFTER BREAKFAST. (HEART AND DIABETES MEDICATION))
     Route: 065
  4. EZETIMIBE\ROSUVASTATIN [Suspect]
     Active Substance: EZETIMIBE\ROSUVASTATIN
     Indication: Product used for unknown indication
     Dosage: UNK, QD (1 TABLET ONCE DAILY AFTER DINNER)
     Route: 065

REACTIONS (14)
  - Gastritis erosive [Unknown]
  - Heart failure with reduced ejection fraction [Recovering/Resolving]
  - Atrial fibrillation [Unknown]
  - Ischaemic cardiomyopathy [Unknown]
  - Type 2 diabetes mellitus [Unknown]
  - Upper respiratory tract infection [Unknown]
  - Tendonitis [Unknown]
  - Reflux laryngitis [Unknown]
  - Oesophagitis [Unknown]
  - Hiatus hernia [Unknown]
  - Cardiovascular disorder [Unknown]
  - Hyperuricaemia [Unknown]
  - Cholelithiasis [Unknown]
  - Wrong technique in product usage process [Unknown]
